FAERS Safety Report 12908469 (Version 1)
Quarter: 2016Q4

REPORT INFORMATION
  Report Type: Spontaneous
  Country: JP (occurrence: JP)
  Receive Date: 20161103
  Receipt Date: 20161103
  Transmission Date: 20170207
  Serious: Yes (Other)
  Sender: FDA-Public Use
  Company Number: JP-PFIZER INC-2016504711

PATIENT
  Age: 40 Year
  Sex: Male

DRUGS (2)
  1. RHEUMATREX [Suspect]
     Active Substance: METHOTREXATE SODIUM
     Indication: PSORIASIS
     Dosage: UNK
     Route: 048
  2. REMICADE [Concomitant]
     Active Substance: INFLIXIMAB

REACTIONS (2)
  - Product use issue [Unknown]
  - Deafness [Unknown]
